FAERS Safety Report 6680958-0 (Version None)
Quarter: 2010Q2

REPORT INFORMATION
  Report Type: 
  Country: None (occurrence: None)
  Receive Date: 20100412
  Receipt Date: 20100331
  Transmission Date: 20101027
  Serious: Yes (Life-Threatening, Other)
  Sender: FDA-Public Use
  Company Number: 2010AP000651

PATIENT
  Age: 48 Year
  Sex: Female

DRUGS (2)
  1. PAROXETINE HYDROCHLOIRDE [Suspect]
     Dosage: PO
     Route: 048
  2. CLOZARIL [Suspect]
     Indication: SCHIZOPHRENIA
     Dosage: 300 MG;TAB;PO
     Route: 048
     Dates: start: 19961003

REACTIONS (1)
  - LUNG NEOPLASM MALIGNANT [None]
